FAERS Safety Report 16718503 (Version 1)
Quarter: 2019Q3

REPORT INFORMATION
  Report Type: Report from Study
  Country: CO (occurrence: CO)
  Receive Date: 20190820
  Receipt Date: 20190820
  Transmission Date: 20191005
  Serious: Yes (Death, Other)
  Sender: FDA-Public Use
  Company Number: CO-ACTELION-A-CH2018-175023

PATIENT
  Age: 25 Year
  Sex: Female
  Weight: 40 kg

DRUGS (5)
  1. OPSUMIT [Suspect]
     Active Substance: MACITENTAN
     Dosage: 10 MG, QOD
     Route: 048
     Dates: start: 20180819, end: 20180822
  2. SILDENAFIL. [Concomitant]
     Active Substance: SILDENAFIL
     Indication: PULMONARY ARTERIAL HYPERTENSION
     Dosage: UNK
     Route: 048
     Dates: start: 20190101, end: 20190815
  3. OPSUMIT [Suspect]
     Active Substance: MACITENTAN
     Dosage: 10 MG, QD
     Route: 048
     Dates: start: 20171115
  4. ILOPROST. [Concomitant]
     Active Substance: ILOPROST
  5. OPSUMIT [Suspect]
     Active Substance: MACITENTAN
     Indication: PULMONARY ARTERIAL HYPERTENSION
     Dosage: 10 MG, QD
     Route: 048
     Dates: start: 20180903, end: 2019

REACTIONS (5)
  - Cyanosis [Not Recovered/Not Resolved]
  - Treatment noncompliance [Unknown]
  - Fatigue [Fatal]
  - Dyspnoea [Fatal]
  - Malaise [Unknown]

NARRATIVE: CASE EVENT DATE: 2018
